FAERS Safety Report 14092792 (Version 1)
Quarter: 2017Q4

REPORT INFORMATION
  Report Type: Spontaneous
  Country: US (occurrence: US)
  Receive Date: 20171016
  Receipt Date: 20171016
  Transmission Date: 20180321
  Serious: Yes (Other)
  Sender: FDA-Public Use
  Company Number: US-PFIZER INC-2017438472

PATIENT
  Sex: Male

DRUGS (1)
  1. LIPITOR [Suspect]
     Active Substance: ATORVASTATIN CALCIUM
     Dosage: UNK

REACTIONS (3)
  - Oesophageal stenosis [Not Recovered/Not Resolved]
  - Throat irritation [Not Recovered/Not Resolved]
  - Product quality issue [Not Recovered/Not Resolved]
